FAERS Safety Report 9149284 (Version 2)
Quarter: 2013Q1

REPORT INFORMATION
  Report Type: Spontaneous
  Country: US (occurrence: US)
  Receive Date: 20130308
  Receipt Date: 20130311
  Transmission Date: 20140127
  Serious: No
  Sender: FDA-Public Use
  Company Number: US-PFIZER INC-2013078055

PATIENT
  Age: 81 Year
  Sex: Male
  Weight: 81.63 kg

DRUGS (7)
  1. VIAGRA [Suspect]
     Indication: ERECTILE DYSFUNCTION
     Dosage: 12.5 MG (CUTTING 25MG IN HALF), AS NEEDED
     Route: 048
  2. VIAGRA [Suspect]
     Indication: ERECTILE DYSFUNCTION
     Dosage: 100 MG, UNK
     Route: 048
     Dates: start: 2012
  3. VIAGRA [Suspect]
     Dosage: 100 MG, AS NEEDED
     Route: 048
  4. CIALIS [Suspect]
     Indication: ERECTILE DYSFUNCTION
     Dosage: UNK
  5. ANDROGEL [Concomitant]
     Indication: BLOOD TESTOSTERONE DECREASED
     Dosage: 1.62%, UNK
     Dates: start: 2007
  6. ANDROGEL [Concomitant]
     Dosage: UNK
  7. PRAVASTATIN [Concomitant]
     Indication: BLOOD CHOLESTEROL INCREASED
     Dosage: UNK

REACTIONS (3)
  - Drug ineffective [Unknown]
  - Drug ineffective [Unknown]
  - Circumstance or information capable of leading to medication error [Unknown]
